FAERS Safety Report 10098911 (Version 1)
Quarter: 2014Q2

REPORT INFORMATION
  Report Type: Spontaneous
  Country: GB (occurrence: GB)
  Receive Date: 20140423
  Receipt Date: 20140423
  Transmission Date: 20141212
  Serious: Yes (Hospitalization)
  Sender: FDA-Public Use
  Company Number: GB-ASTRAZENECA-2014SE26386

PATIENT
  Age: 61 Year
  Sex: Female

DRUGS (3)
  1. OMEPRAZOLE [Suspect]
     Indication: DYSPEPSIA
  2. MESALAMINE [Concomitant]
     Indication: DYSPEPSIA
  3. LOPERAMIDE [Concomitant]
     Indication: DYSPEPSIA

REACTIONS (6)
  - Hypocalcaemia [Recovered/Resolved]
  - Tetany [Unknown]
  - Hypomagnesaemia [Recovered/Resolved]
  - Paraesthesia [Unknown]
  - Tachycardia [Unknown]
  - Hypotension [Unknown]
